FAERS Safety Report 18833705 (Version 1)
Quarter: 2021Q1

REPORT INFORMATION
  Report Type: Spontaneous
  Country: JP (occurrence: JP)
  Receive Date: 20210203
  Receipt Date: 20210203
  Transmission Date: 20210419
  Serious: Yes (Hospitalization)
  Sender: FDA-Public Use
  Company Number: JP-FERRINGPH-2021FE00439

PATIENT

DRUGS (1)
  1. MINIRINMELT [Suspect]
     Active Substance: DESMOPRESSIN ACETATE
     Indication: DIABETES INSIPIDUS
     Route: 065

REACTIONS (4)
  - Off label use [Unknown]
  - Hospitalisation [Unknown]
  - Contraindicated product prescribed [Unknown]
  - Renal impairment [Unknown]
